FAERS Safety Report 10231977 (Version 14)
Quarter: 2016Q4

REPORT INFORMATION
  Report Type: Report from Study
  Country: GB (occurrence: GB)
  Receive Date: 20140612
  Receipt Date: 20161122
  Transmission Date: 20170206
  Serious: Yes (Hospitalization, Other)
  Sender: FDA-Public Use
  Company Number: GB-ROCHE-1387977

PATIENT
  Age: 58 Year
  Sex: Female
  Weight: 97 kg

DRUGS (3)
  1. SODIUM CLODRONATE [Concomitant]
     Active Substance: CLODRONIC ACID
     Route: 065
     Dates: start: 20070206
  2. VEMURAFENIB [Suspect]
     Active Substance: VEMURAFENIB
     Indication: PLASMA CELL MYELOMA
     Route: 048
     Dates: start: 20140515, end: 20140707
  3. VEMURAFENIB [Suspect]
     Active Substance: VEMURAFENIB
     Indication: NEOPLASM MALIGNANT
     Dosage: LAST DOSE PRIOR TO SEPTICEMIA AND SQUAMOPROLIFERATIVE LESIONS (UNK DIAGNOSIS): 16/APR/2014
     Route: 048
     Dates: start: 20140220, end: 20140417

REACTIONS (2)
  - Sepsis [Recovered/Resolved]
  - Skin lesion [Recovered/Resolved]

NARRATIVE: CASE EVENT DATE: 20140416
